FAERS Safety Report 7600321-5 (Version None)
Quarter: 2011Q2

REPORT INFORMATION
  Report Type: 
  Country: None (occurrence: None)
  Receive Date: 20110629
  Receipt Date: 20110614
  Transmission Date: 20111010
  Serious: Yes (Hospitalization)
  Sender: FDA-Public Use
  Company Number: 2011S1000832

PATIENT
  Age: 65 Year
  Sex: Male

DRUGS (5)
  1. LIVALO [Suspect]
     Indication: HYPERLIPIDAEMIA
     Dosage: 2 MG;1X;PO
     Route: 048
     Dates: start: 20100914, end: 20101224
  2. BIPHENYL DIMETHYL [Concomitant]
  3. DICARBOXYLATE [Concomitant]
  4. DIAZEPAM [Concomitant]
  5. LEVOSULPIRIDE [Concomitant]

REACTIONS (4)
  - RHABDOMYOLYSIS [None]
  - WEIGHT DECREASED [None]
  - GAIT DISTURBANCE [None]
  - DYSGEUSIA [None]
